FAERS Safety Report 20476084 (Version 4)
Quarter: 2024Q1

REPORT INFORMATION
  Report Type: Spontaneous
  Country: US (occurrence: US)
  Receive Date: 20220215
  Receipt Date: 20240125
  Transmission Date: 20240410
  Serious: Yes (Other)
  Sender: FDA-Public Use
  Company Number: US-PFIZER INC-202200213474

PATIENT
  Age: 68 Year
  Sex: Female

DRUGS (2)
  1. XELJANZ [Suspect]
     Active Substance: TOFACITINIB CITRATE
     Dosage: 10 MG
  2. XELJANZ [Suspect]
     Active Substance: TOFACITINIB CITRATE
     Dosage: 5 MG, 60 TAB BOTTLE

REACTIONS (6)
  - Drug dependence [Unknown]
  - Loss of personal independence in daily activities [Unknown]
  - Sneezing [Unknown]
  - Pain [Unknown]
  - Cough [Unknown]
  - Product prescribing error [Unknown]
